FAERS Safety Report 8263356-8 (Version None)
Quarter: 2012Q2

REPORT INFORMATION
  Report Type: 
  Country: None (occurrence: None)
  Receive Date: 20120405
  Receipt Date: 20120328
  Transmission Date: 20120825
  Serious: Yes (Hospitalization)
  Sender: FDA-Public Use
  Company Number: JP-EISAI INC-E7389-01770-CLI-JP

PATIENT
  Sex: Female
  Weight: 42 kg

DRUGS (13)
  1. MUCOSTA [Concomitant]
     Indication: PROPHYLAXIS
     Route: 048
  2. PRIMPERAN TAB [Concomitant]
     Indication: PROPHYLAXIS
     Route: 048
  3. HALAVEN [Suspect]
     Route: 041
     Dates: start: 20111014
  4. FERRUM [Concomitant]
     Route: 048
  5. HALAVEN [Suspect]
     Indication: BREAST CANCER RECURRENT
     Route: 041
     Dates: start: 20110819, end: 20110819
  6. URSO 250 [Concomitant]
     Route: 048
  7. MAGMITT [Concomitant]
     Indication: PROPHYLAXIS
     Route: 048
  8. JUZEN-TAIHO-TO [Concomitant]
     Route: 048
  9. RHYTHMY [Concomitant]
     Route: 048
  10. HALAVEN [Suspect]
     Indication: METASTASES TO LIVER
     Route: 041
     Dates: start: 20110901, end: 20110916
  11. HALAVEN [Suspect]
     Route: 041
     Dates: start: 20110928, end: 20110928
  12. LEVOTHYROXINE SODIUM [Concomitant]
     Route: 048
  13. NEU-UP [Concomitant]
     Indication: PROPHYLAXIS
     Route: 058

REACTIONS (3)
  - NEUTROPENIA [None]
  - FEBRILE NEUTROPENIA [None]
  - LEUKOPENIA [None]
